FAERS Safety Report 25751825 (Version 2)
Quarter: 2025Q3

REPORT INFORMATION
  Report Type: Spontaneous
  Country: BR (occurrence: BR)
  Receive Date: 20250902
  Receipt Date: 20250910
  Transmission Date: 20251021
  Serious: Yes (Other)
  Sender: PURDUE
  Company Number: BR-NAPPMUNDI-GBR-2025-0128438

PATIENT
  Age: 44 Year
  Sex: Female
  Weight: 78 kg

DRUGS (2)
  1. BUPRENORPHINE [Interacting]
     Active Substance: BUPRENORPHINE
     Indication: Pain
     Route: 062
     Dates: start: 20250819, end: 20250820
  2. GABAPENTIN [Interacting]
     Active Substance: GABAPENTIN
     Indication: Product used for unknown indication
     Route: 065

REACTIONS (11)
  - Nausea [Unknown]
  - Dizziness [Unknown]
  - Vomiting [Unknown]
  - Tremor [Unknown]
  - Hyperhidrosis [Unknown]
  - Head discomfort [Not Recovered/Not Resolved]
  - Application site pain [Unknown]
  - Eating disorder [Not Recovered/Not Resolved]
  - Gastrointestinal motility disorder [Unknown]
  - Labelled drug-drug interaction issue [Unknown]
  - Faeces discoloured [Unknown]

NARRATIVE: CASE EVENT DATE: 20250801
